FAERS Safety Report 17754825 (Version 2)
Quarter: 2020Q2

REPORT INFORMATION
  Report Type: Spontaneous
  Country: US (occurrence: US)
  Receive Date: 20200507
  Receipt Date: 20200507
  Transmission Date: 20200714
  Serious: No
  Sender: FDA-Public Use
  Company Number: US-BRISTOL-MYERS SQUIBB COMPANY-BMS-2020-036386

PATIENT
  Sex: Female

DRUGS (1)
  1. ORENCIA [Suspect]
     Active Substance: ABATACEPT
     Indication: SYNOVIAL CYST
     Dosage: 125 MILLIGRAM, QWK
     Route: 058
     Dates: start: 202004

REACTIONS (5)
  - Injection site pain [Unknown]
  - Muscular weakness [Unknown]
  - Device malfunction [Unknown]
  - Intentional product use issue [Unknown]
  - Injection site bruising [Unknown]
